FAERS Safety Report 5504516-6 (Version None)
Quarter: 2007Q4

REPORT INFORMATION
  Report Type: 
  Country: None (occurrence: None)
  Receive Date: 20071101
  Receipt Date: 20071026
  Transmission Date: 20080405
  Serious: Yes (Other)
  Sender: FDA-Public Use
  Company Number: US-SANOFI-SYNTHELABO-A03200706196

PATIENT

DRUGS (2)
  1. ELOXATIN [Suspect]
     Indication: RECTAL CANCER
     Route: 042
  2. FLUOROURACIL [Suspect]
     Indication: RECTAL CANCER
     Dosage: UNK
     Route: 042

REACTIONS (1)
  - PANCYTOPENIA [None]
